FAERS Safety Report 9478168 (Version 1)
Quarter: 2013Q3

REPORT INFORMATION
  Report Type: Spontaneous
  Country: BR (occurrence: BR)
  Receive Date: 20130827
  Receipt Date: 20130827
  Transmission Date: 20140515
  Serious: Yes (Other)
  Sender: FDA-Public Use
  Company Number: BR-PFIZER INC-2013242706

PATIENT
  Age: 78 Year
  Sex: Male
  Weight: 77 kg

DRUGS (1)
  1. XALATAN [Suspect]
     Indication: INTRAOCULAR PRESSURE TEST
     Dosage: 1 DROP IN EACH EYE (3 UG), 1X/DAY
     Route: 047
     Dates: start: 2003, end: 20130818

REACTIONS (2)
  - Diabetes mellitus [Not Recovered/Not Resolved]
  - Headache [Not Recovered/Not Resolved]
